FAERS Safety Report 13801806 (Version 1)
Quarter: 2017Q3

REPORT INFORMATION
  Report Type: Spontaneous
  Country: US (occurrence: US)
  Receive Date: 20170727
  Receipt Date: 20170727
  Transmission Date: 20171127
  Serious: No
  Sender: FDA-Public Use
  Company Number: US-BAYER-2017-142690

PATIENT
  Age: 72 Year
  Sex: Male
  Weight: 113 kg

DRUGS (3)
  1. MIRALAX [Suspect]
     Active Substance: POLYETHYLENE GLYCOL 3350
     Indication: CONSTIPATION
     Dosage: UNK
     Route: 048
     Dates: start: 2015, end: 201706
  2. METOPROLOL. [Concomitant]
     Active Substance: METOPROLOL
     Dosage: TWICE DAILY
  3. AMITIZA [Concomitant]
     Active Substance: LUBIPROSTONE
     Dosage: UNK

REACTIONS (7)
  - Extra dose administered [Unknown]
  - Incorrect drug administration duration [Unknown]
  - Paraesthesia [Not Recovered/Not Resolved]
  - Hypoaesthesia [Not Recovered/Not Resolved]
  - Dizziness [Not Recovered/Not Resolved]
  - Inappropriate prescribing [Unknown]
  - Product use in unapproved indication [Unknown]

NARRATIVE: CASE EVENT DATE: 2015
